FAERS Safety Report 10800877 (Version 3)
Quarter: 2016Q1

REPORT INFORMATION
  Report Type: Spontaneous
  Country: US (occurrence: US)
  Receive Date: 20150216
  Receipt Date: 20160217
  Transmission Date: 20160525
  Serious: No
  Sender: FDA-Public Use
  Company Number: US-ALLERGAN-1426336US

PATIENT
  Sex: Female
  Weight: 73.16 kg

DRUGS (10)
  1. AZASITE [Concomitant]
     Active Substance: AZITHROMYCIN MONOHYDRATE
     Indication: PRODUCT USED FOR UNKNOWN INDICATION
     Dosage: 2 GTT, BID
     Dates: start: 20150319
  2. ADVIL (MEFENAMIC ACID) [Concomitant]
     Active Substance: MEFENAMIC ACID
     Indication: BACK PAIN
     Dosage: 400 MG, PRN
  3. RESTASIS [Suspect]
     Active Substance: CYCLOSPORINE
     Dosage: 1 GTT TWICE DAILY, AM + PM
  4. VIVELLE-DOT [Concomitant]
     Active Substance: ESTRADIOL
     Indication: PRODUCT USED FOR UNKNOWN INDICATION
     Dosage: 0.075 TWICE WEEKLY
  5. RESTASIS [Suspect]
     Active Substance: CYCLOSPORINE
     Indication: DRY EYE
     Dosage: 2 GTT, BID
     Route: 047
  6. PROBIOTICS [Concomitant]
     Active Substance: PROBIOTICS NOS
     Indication: PRODUCT USED FOR UNKNOWN INDICATION
  7. SYSTANE BALANCE [Concomitant]
     Active Substance: PROPYLENE GLYCOL
     Indication: PRODUCT USED FOR UNKNOWN INDICATION
     Dosage: 1 GTT BOTH EYES, PRN
  8. TOPROL XL [Concomitant]
     Active Substance: METOPROLOL SUCCINATE
     Indication: SUPRAVENTRICULAR EXTRASYSTOLES
     Dosage: 200 MG, QD
  9. POLYTRIM [Concomitant]
     Active Substance: POLYMYXIN B SULFATE\TRIMETHOPRIM SULFATE
     Indication: PRODUCT USED FOR UNKNOWN INDICATION
     Dosage: 2 GTT, BID
  10. VITAMIN D                          /00107901/ [Concomitant]
     Active Substance: ERGOCALCIFEROL
     Indication: PRODUCT USED FOR UNKNOWN INDICATION
     Dosage: 5000 IU, QD

REACTIONS (6)
  - Visual impairment [Unknown]
  - Eye pain [Unknown]
  - Conjunctivitis [Unknown]
  - Lacrimal disorder [Unknown]
  - Eye irritation [Unknown]
  - Eye discharge [Unknown]
